FAERS Safety Report 4359440-1 (Version None)
Quarter: 2004Q2

REPORT INFORMATION
  Report Type: 
  Country: None (occurrence: None)
  Receive Date: 20040511
  Receipt Date: 20040414
  Transmission Date: 20050107
  Serious: Yes (Death, Hospitalization)
  Sender: FDA-Public Use
  Company Number: A-CH2004-05537

PATIENT
  Age: 12 Year
  Sex: Male

DRUGS (9)
  1. TRACLEER [Suspect]
     Indication: PULMONARY HYPERTENSION
     Dosage: 31.25 MG, BID, ORAL
     Route: 048
     Dates: start: 20040202, end: 20040219
  2. EPINEPHRINE [Suspect]
  3. DOBUTREX [Suspect]
  4. PREVISCAN (FLUINDIONE) [Concomitant]
  5. QUINAPRIL HCL [Concomitant]
  6. LASIX [Concomitant]
  7. ALDACTONE [Concomitant]
  8. CARVEDILOL [Concomitant]
  9. CORDARONE [Concomitant]

REACTIONS (6)
  - ALANINE AMINOTRANSFERASE INCREASED [None]
  - ASPARTATE AMINOTRANSFERASE INCREASED [None]
  - BLOOD BILIRUBIN INCREASED [None]
  - CARDIAC FAILURE [None]
  - LIVER FUNCTION TEST ABNORMAL [None]
  - VENTRICULAR FIBRILLATION [None]
